FAERS Safety Report 8545681-6 (Version None)
Quarter: 2012Q3

REPORT INFORMATION
  Report Type: 
  Country: None (occurrence: None)
  Receive Date: 20120727
  Receipt Date: 20120713
  Transmission Date: 20120928
  Serious: Yes (Other)
  Sender: FDA-Public Use
  Company Number: CHPA2012US015579

PATIENT
  Age: 72 Year
  Sex: Female

DRUGS (3)
  1. EXCEDRIN TENSION HEADACHE CAPLETS [Suspect]
     Indication: PAIN
     Dosage: 2 CAPLETS, Q4-6H PRN
     Route: 048
     Dates: end: 20120101
  2. LIPITOR [Concomitant]
     Indication: BLOOD CHOLESTEROL INCREASED
     Dosage: UNK, UNK
  3. KLOR-CON [Concomitant]
     Indication: MINERAL SUPPLEMENTATION
     Dosage: UNK, UNK

REACTIONS (2)
  - MYOCARDIAL INFARCTION [None]
  - OFF LABEL USE [None]
